FAERS Safety Report 5901903-9 (Version None)
Quarter: 2008Q3

REPORT INFORMATION
  Report Type: 
  Country: None (occurrence: None)
  Receive Date: 20080925
  Receipt Date: 20080827
  Transmission Date: 20090109
  Serious: No
  Sender: FDA-Public Use
  Company Number: ADE# 08-141

PATIENT
  Sex: Female

DRUGS (13)
  1. PHENYTOIN SODIUM [Suspect]
     Indication: CONVULSION PROPHYLAXIS
     Dosage: 300MG DAILY AT BEDTIME
     Dates: start: 20080523, end: 20080701
  2. CLONAZEPAM [Concomitant]
  3. METFORMIN HCL [Concomitant]
  4. TRAZODONE HCL [Concomitant]
  5. LIPITOR [Concomitant]
  6. FUROSEMIDE [Concomitant]
  7. SPIRONOLACTONE [Concomitant]
  8. DIOVAN [Concomitant]
  9. KCL TAB [Concomitant]
  10. TRILEPTAL [Concomitant]
  11. ZONEGRAN [Concomitant]
  12. HUMALOG [Concomitant]
  13. AUGMENTIN '125' [Concomitant]

REACTIONS (3)
  - CONDITION AGGRAVATED [None]
  - CONVULSION [None]
  - PHARMACEUTICAL PRODUCT COMPLAINT [None]
